FAERS Safety Report 5409832-4 (Version None)
Quarter: 2007Q3

REPORT INFORMATION
  Report Type: 
  Country: None (occurrence: None)
  Receive Date: 20070809
  Receipt Date: 20070731
  Transmission Date: 20080115
  Serious: Yes (Other)
  Sender: FDA-Public Use
  Company Number: DE-ASTRAZENECA-2007PK01650

PATIENT
  Age: 724 Month
  Sex: Female
  Weight: 90 kg

DRUGS (3)
  1. NEXIUM [Suspect]
     Indication: GASTROOESOPHAGEAL REFLUX DISEASE
     Route: 048
     Dates: start: 20061211, end: 20061225
  2. NEXIUM [Suspect]
     Route: 048
     Dates: start: 20070101, end: 20070201
  3. OMEPRAZOLE [Suspect]
     Indication: GASTROOESOPHAGEAL REFLUX DISEASE
     Route: 048
     Dates: start: 20070108, end: 20070120

REACTIONS (1)
  - VISUAL ACUITY REDUCED [None]
